FAERS Safety Report 20836363 (Version 1)
Quarter: 2022Q2

REPORT INFORMATION
  Report Type: 
  Country: None (occurrence: None)
  Receive Date: 20220517
  Receipt Date: 20220517
  Transmission Date: 20220721
  Serious: No
  Sender: FDA-Public Use
  Company Number: CN-ROCHE-3096062

PATIENT
  Weight: 80 kg

DRUGS (2)
  1. XELODA [Suspect]
     Active Substance: CAPECITABINE
     Dates: start: 20220216, end: 20220301
  2. XELODA [Suspect]
     Active Substance: CAPECITABINE
     Dates: start: 20220309, end: 20220406

REACTIONS (1)
  - Hepatic function abnormal [None]

NARRATIVE: CASE EVENT DATE: 20220419
